FAERS Safety Report 4644959-6 (Version None)
Quarter: 2005Q2

REPORT INFORMATION
  Report Type: 
  Country: None (occurrence: None)
  Receive Date: 20050426
  Receipt Date: 20050415
  Transmission Date: 20051028
  Serious: Yes (Other)
  Sender: FDA-Public Use
  Company Number: US-GLAXOSMITHKLINE-A0554347A

PATIENT
  Age: 73 Year
  Sex: Female
  Weight: 72.7 kg

DRUGS (3)
  1. DEBROX DROPS [Suspect]
     Route: 001
     Dates: start: 20050413
  2. HUMULIN 70/30 [Concomitant]
     Dosage: 12IU TWICE PER DAY
     Route: 058
  3. GLUCOPHAGE [Concomitant]
     Dosage: 500MG TWICE PER DAY
     Route: 048

REACTIONS (3)
  - DEAFNESS TRANSITORY [None]
  - HEARING IMPAIRED [None]
  - MIDDLE EAR EFFUSION [None]
